FAERS Safety Report 13712813 (Version 1)
Quarter: 2017Q3

REPORT INFORMATION
  Report Type: Spontaneous
  Country: AU (occurrence: AU)
  Receive Date: 20170703
  Receipt Date: 20170703
  Transmission Date: 20171127
  Serious: Yes (Other)
  Sender: FDA-Public Use
  Company Number: PHHY2017AU091732

PATIENT
  Age: 65 Year
  Sex: Female

DRUGS (2)
  1. DOXORUBICIN [Suspect]
     Active Substance: DOXORUBICIN
     Indication: PRODUCT USED FOR UNKNOWN INDICATION
     Dosage: 6 CYCLES OF CHEMOTHERAPY
     Route: 065
     Dates: start: 201408
  2. LETROZOLE. [Suspect]
     Active Substance: LETROZOLE
     Indication: ENDOMETRIAL STROMAL SARCOMA
     Dosage: UNK
     Route: 065
     Dates: start: 201408, end: 201412

REACTIONS (5)
  - Metastases to lung [Unknown]
  - Malignant neoplasm progression [Unknown]
  - Abdominal lymphadenopathy [Unknown]
  - Product use in unapproved indication [Unknown]
  - Endometrial stromal sarcoma [Unknown]

NARRATIVE: CASE EVENT DATE: 201408
